FAERS Safety Report 7671337-8 (Version None)
Quarter: 2011Q3

REPORT INFORMATION
  Report Type: 
  Country: None (occurrence: None)
  Receive Date: 20110809
  Receipt Date: 20110801
  Transmission Date: 20111222
  Serious: Yes (Other)
  Sender: FDA-Public Use
  Company Number: US-AMGEN-USASP2011039364

PATIENT

DRUGS (1)
  1. PROCRIT [Suspect]
     Indication: SURGERY

REACTIONS (1)
  - INCORRECT DRUG DOSAGE FORM ADMINISTERED [None]
